FAERS Safety Report 6658029-9 (Version None)
Quarter: 2010Q1

REPORT INFORMATION
  Report Type: 
  Country: None (occurrence: None)
  Receive Date: 20100325
  Receipt Date: 20100312
  Transmission Date: 20100710
  Serious: Yes (Other)
  Sender: FDA-Public Use
  Company Number: 2010AL001352

PATIENT
  Age: 30 Year
  Sex: Male

DRUGS (2)
  1. SERTRALINE HYDROCHLORIDE [Suspect]
     Indication: OBSESSIVE-COMPULSIVE DISORDER
     Dosage: 100 MG; PO
     Route: 048
     Dates: start: 20100118, end: 20100127
  2. OLANZAPINE [Concomitant]

REACTIONS (1)
  - HEPATITIS [None]
